FAERS Safety Report 9441933 (Version 2)
Quarter: 2013Q3

REPORT INFORMATION
  Report Type: Report from Study
  Country: US (occurrence: US)
  Receive Date: 20130806
  Receipt Date: 20130813
  Transmission Date: 20140515
  Serious: Yes (Death)
  Sender: FDA-Public Use
  Company Number: US-ROCHE-1257824

PATIENT
  Sex: Male
  Weight: 54.5 kg

DRUGS (5)
  1. XELODA [Suspect]
     Indication: OESOPHAGEAL CARCINOMA
     Dosage: 14 DAYS ON AND 7 DAYS OFF
     Route: 048
     Dates: start: 201304, end: 20130705
  2. OMEPRAZOLE [Concomitant]
     Route: 048
  3. ATIVAN [Concomitant]
     Indication: NAUSEA
     Route: 048
  4. OXYCODONE HYDROCHLORIDE [Concomitant]
     Indication: PAIN
     Dosage: 10 MG PRN 10 MG SR TID
     Route: 048
  5. REGLAN [Concomitant]
     Route: 048

REACTIONS (1)
  - Malignant neoplasm progression [Fatal]
